FAERS Safety Report 14535560 (Version 1)
Quarter: 2018Q1

REPORT INFORMATION
  Report Type: Spontaneous
  Country: US (occurrence: US)
  Receive Date: 20180215
  Receipt Date: 20180215
  Transmission Date: 20180509
  Serious: No
  Sender: FDA-Public Use
  Company Number: US-BAUSCH-BL-2017-023560

PATIENT
  Sex: Female

DRUGS (3)
  1. DILTIAZEM CD [Suspect]
     Active Substance: DILTIAZEM
     Indication: PRODUCT USED FOR UNKNOWN INDICATION
     Dosage: STARTED A WHILE AGO
     Route: 048
     Dates: start: 2017
  2. CHOLESTYRAMINE. [Suspect]
     Active Substance: CHOLESTYRAMINE
     Indication: GASTROINTESTINAL DISORDER
  3. CHOLESTYRAMINE. [Suspect]
     Active Substance: CHOLESTYRAMINE
     Indication: DIARRHOEA
     Route: 065
     Dates: start: 2017, end: 2017

REACTIONS (6)
  - Nail disorder [Unknown]
  - Rash [Unknown]
  - Gastrointestinal disorder [Unknown]
  - Diarrhoea [Unknown]
  - Dyspnoea [Unknown]
  - Nail discolouration [Unknown]

NARRATIVE: CASE EVENT DATE: 2017
